FAERS Safety Report 4347591-7 (Version None)
Quarter: 2004Q2

REPORT INFORMATION
  Report Type: 
  Country: None (occurrence: None)
  Receive Date: 20040422
  Receipt Date: 20040405
  Transmission Date: 20050107
  Serious: Yes (Hospitalization, Other)
  Sender: FDA-Public Use
  Company Number: US_0404102049

PATIENT
  Age: 64 Year
  Sex: Female

DRUGS (10)
  1. OLANZAPINE [Suspect]
     Indication: BIPOLAR DISORDER
     Dosage: 11.25 MG DAY
  2. DIVALPROEX SODIUM [Concomitant]
  3. GLIPIZIDE [Concomitant]
  4. FUROSEMIDE [Concomitant]
  5. ATORVASTATIN [Concomitant]
  6. LISINOPRIL [Concomitant]
  7. FERROUS SULFATE TAB [Concomitant]
  8. DOCUSATE SODIUM [Concomitant]
  9. SENNA [Concomitant]
  10. PILOCARPINE [Concomitant]

REACTIONS (4)
  - BLOOD GLUCOSE INCREASED [None]
  - BLOOD POTASSIUM INCREASED [None]
  - BLOOD THYROID STIMULATING HORMONE INCREASED [None]
  - HYPOTHERMIA [None]
